FAERS Safety Report 12911251 (Version 2)
Quarter: 2016Q4

REPORT INFORMATION
  Report Type: Not Available
  Country: GB (occurrence: GB)
  Receive Date: 20161104
  Receipt Date: 20161216
  Transmission Date: 20170207
  Serious: Yes (Death, Hospitalization)
  Sender: FDA-Public Use
  Company Number: GB-MUNDIPHARMA DS AND PHARMACOVIGILANCE-GBR-2016-0041339

PATIENT
  Age: 87 Year
  Sex: Male

DRUGS (8)
  1. TAMSULOSIN [Suspect]
     Active Substance: TAMSULOSIN
     Indication: BENIGN PROSTATIC HYPERPLASIA
     Dosage: 400 MCG, DAILY
     Route: 048
     Dates: start: 20160222
  2. ATORVASTATIN [Concomitant]
     Active Substance: ATORVASTATIN
  3. MORPHINE SULFATE. [Suspect]
     Active Substance: MORPHINE SULFATE
     Dosage: 10 MG, BID
     Route: 048
     Dates: start: 20160318
  4. PERINDOPRIL [Concomitant]
     Active Substance: PERINDOPRIL
  5. MORPHINE SULFATE. [Suspect]
     Active Substance: MORPHINE SULFATE
     Indication: PAIN
     Dosage: 10 MG, QID
     Route: 048
     Dates: start: 20160318, end: 20160321
  6. SILDENAFIL. [Concomitant]
     Active Substance: SILDENAFIL
     Indication: ERECTILE DYSFUNCTION
  7. ASPIRIN. [Concomitant]
     Active Substance: ASPIRIN
  8. WARFARIN [Concomitant]
     Active Substance: WARFARIN
     Dosage: UNK
     Dates: end: 20160217

REACTIONS (3)
  - Bladder cancer [Fatal]
  - Circulatory collapse [Recovered/Resolved]
  - Hypotension [Recovered/Resolved]

NARRATIVE: CASE EVENT DATE: 20160321
